FAERS Safety Report 6232363-9 (Version None)
Quarter: 2009Q2

REPORT INFORMATION
  Report Type: 
  Country: None (occurrence: None)
  Receive Date: 20090617
  Receipt Date: 20090604
  Transmission Date: 20091009
  Serious: Yes (Hospitalization, Other)
  Sender: FDA-Public Use
  Company Number: PHHY2009CA22031

PATIENT
  Sex: Female

DRUGS (34)
  1. CLOZARIL [Suspect]
     Indication: SCHIZOPHRENIA, PARANOID TYPE
     Dosage: UNK
     Dates: start: 20000215, end: 20010207
  2. DALMANE [Concomitant]
     Dosage: 30 MG, QHS
     Route: 048
     Dates: start: 20090529
  3. DESYREL [Concomitant]
     Dosage: 200 MG, QHS
     Route: 048
     Dates: start: 20090529
  4. REMERON [Concomitant]
     Dosage: 30 MG, QHS
     Route: 048
     Dates: start: 20090529
  5. REMERON [Concomitant]
     Dosage: 15 MG, QHS
     Dates: start: 20090604
  6. AVAPRO [Concomitant]
     Dosage: 150 MG DAILY
     Route: 048
     Dates: start: 20090529
  7. ESTRACE [Concomitant]
     Dosage: 1 MG, QHS
     Route: 048
     Dates: start: 20090529
  8. AVANDIA [Concomitant]
     Dosage: 4 MG AM
     Route: 048
     Dates: start: 20090529
  9. ANDRIOL [Concomitant]
     Dosage: 40 MG EVERY OTHERDAY
     Dates: start: 20090529
  10. OMEGA-3 FATTY ACIDS [Concomitant]
     Dosage: 1 DF, TID
     Route: 048
     Dates: start: 20090530
  11. VITAMIN D3 [Concomitant]
     Dosage: 100 UNIT DAILY
     Route: 048
  12. RISPERDAL [Concomitant]
     Dosage: 3 MG, BID
     Route: 048
     Dates: start: 20090530
  13. RISPERDAL [Concomitant]
     Dosage: 2 MG, BID
     Route: 048
     Dates: start: 20040609
  14. OSCAL [Concomitant]
     Dosage: 250 MG, BID
     Route: 048
     Dates: start: 20090530
  15. SERC [Concomitant]
     Dosage: 24 MG, BID
     Route: 048
     Dates: start: 20090530
  16. RESTORIL [Concomitant]
     Dosage: 30 MG, QHS
     Route: 048
     Dates: start: 20090530
  17. RESTORIL [Concomitant]
     Dosage: 15 MG, QHS
     Route: 048
     Dates: start: 20090530
  18. COLACE [Concomitant]
     Dosage: 100 MG, BID
     Route: 048
     Dates: start: 20090601
  19. CELEXA [Concomitant]
     Dosage: 60 MG, QHS
     Dates: start: 20090601
  20. CELEXA [Concomitant]
     Dosage: 10 MG, QHS
     Route: 048
     Dates: start: 20090604
  21. CELEXA [Concomitant]
     Dosage: 40 MG, QHS
     Dates: start: 20090602
  22. SYNTHROID [Concomitant]
     Dosage: 25 MCG AM
     Route: 048
     Dates: start: 20090603
  23. SYNTHROID [Concomitant]
     Dosage: 100 UG AM
     Dates: start: 20090530
  24. SYNTHROID [Concomitant]
     Dosage: 150 MCG AM
     Dates: start: 20090602
  25. RIVOTRIL [Concomitant]
     Dosage: 1 MG, BID
     Route: 048
     Dates: start: 20090603
  26. NICORETTE [Concomitant]
     Dosage: 2 MG, QHS
     Route: 048
  27. SUPEUDOL [Concomitant]
     Dosage: 5 MG, Q6H
     Route: 048
     Dates: start: 20090530
  28. SUPEUDOL [Concomitant]
     Dosage: 10 MG, Q6H
     Route: 048
  29. SENOKOT [Concomitant]
     Dosage: 2 DF, QHS
     Route: 048
     Dates: start: 20090531
  30. TYLENOL (CAPLET) [Concomitant]
     Dosage: 500-1000 MG Q4H
     Route: 048
     Dates: start: 20090601
  31. ATIVAN [Concomitant]
     Dosage: 1-4 MG Q4H
     Route: 060
     Dates: start: 20090603
  32. DURALITH [Concomitant]
     Dosage: 600 MG, QHS
     Route: 048
     Dates: start: 20090531
  33. SEROQUEL [Concomitant]
     Dosage: 50 MG, QID
     Route: 048
     Dates: start: 20090529
  34. LITHIUM CARBONATE [Concomitant]
     Dosage: 600 MG, QHS
     Route: 048

REACTIONS (3)
  - BLOOD COUNT ABNORMAL [None]
  - GENERAL PHYSICAL HEALTH DETERIORATION [None]
  - HALLUCINATION, AUDITORY [None]
